FAERS Safety Report 4830175-1 (Version None)
Quarter: 2005Q4

REPORT INFORMATION
  Report Type: 
  Country: None (occurrence: None)
  Receive Date: 20051117
  Receipt Date: 20051102
  Transmission Date: 20060501
  Serious: Yes (Disabling)
  Sender: FDA-Public Use
  Company Number: GB-MERCK-0511GBR00029

PATIENT
  Age: 73 Year
  Sex: Female
  Weight: 54 kg

DRUGS (3)
  1. FOSAMAX [Suspect]
     Indication: OSTEOPOROSIS
     Route: 048
     Dates: start: 20050819, end: 20050903
  2. CALCIUM CARBONATE AND CHOLECALCIFEROL [Concomitant]
     Indication: OSTEOPOROSIS
     Route: 048
  3. ALENDRONATE SODIUM [Suspect]
     Route: 065

REACTIONS (3)
  - HAEMOPTYSIS [None]
  - STOMACH DISCOMFORT [None]
  - THROAT IRRITATION [None]
